FAERS Safety Report 17138397 (Version 1)
Quarter: 2019Q4

REPORT INFORMATION
  Report Type: Spontaneous
  Country: US (occurrence: US)
  Receive Date: 20191119
  Receipt Date: 20191119
  Transmission Date: 20200122
  Serious: Yes (Other)
  Sender: FDA-Public Use
  Company Number: None

PATIENT
  Age: 62 Year
  Sex: Male
  Weight: 83 kg

DRUGS (1)
  1. LITHIUM. [Suspect]
     Active Substance: LITHIUM
     Indication: HYPOMANIA
     Route: 048
     Dates: start: 20181219, end: 20190104

REACTIONS (6)
  - Confusional state [None]
  - Tremor [None]
  - Toxicity to various agents [None]
  - Polyuria [None]
  - Mental impairment [None]
  - Acute kidney injury [None]

NARRATIVE: CASE EVENT DATE: 20190110
